FAERS Safety Report 13527267 (Version 2)
Quarter: 2017Q2

REPORT INFORMATION
  Report Type: Report from Study
  Country: US (occurrence: US)
  Receive Date: 20170509
  Receipt Date: 20170515
  Transmission Date: 20170830
  Serious: Yes (Other)
  Sender: FDA-Public Use
  Company Number: US-ROCHE-1931550

PATIENT
  Sex: Female
  Weight: 64.01 kg

DRUGS (2)
  1. ZELBORAF [Suspect]
     Active Substance: VEMURAFENIB
     Indication: MALIGNANT MELANOMA
     Dosage: 4 PILLS IN MORNING AND 4 PILLS IN EVENING DAILY ;ONGOING: NO
     Route: 048
     Dates: start: 20170123
  2. COTELLIC [Suspect]
     Active Substance: COBIMETINIB
     Indication: METASTATIC MALIGNANT MELANOMA
     Dosage: 3 PILLS DAILY FOR 3 WEEKS THEN OFF 1 WEEK ;ONGOING: NO
     Route: 048
     Dates: start: 20170123

REACTIONS (7)
  - Cardiac disorder [Unknown]
  - Hyperkeratosis [Not Recovered/Not Resolved]
  - Palmar-plantar erythrodysaesthesia syndrome [Not Recovered/Not Resolved]
  - Cough [Not Recovered/Not Resolved]
  - Heart rate increased [Unknown]
  - Hypertension [Unknown]
  - Ventricular extrasystoles [Unknown]
